FAERS Safety Report 9331251 (Version 1)
Quarter: 2013Q2

REPORT INFORMATION
  Report Type: Spontaneous
  Country: CH (occurrence: CH)
  Receive Date: 20130605
  Receipt Date: 20130605
  Transmission Date: 20140414
  Serious: Yes (Life-Threatening, Hospitalization)
  Sender: FDA-Public Use
  Company Number: CH-PFIZER INC-2013168801

PATIENT
  Age: 84 Year
  Sex: Female

DRUGS (6)
  1. CORDARONE [Suspect]
     Indication: ATRIAL FIBRILLATION
     Dosage: 100 MG, DAILY
     Route: 048
  2. CORDARONE [Interacting]
     Indication: ATRIAL FLUTTER
  3. PRADAXA [Interacting]
     Indication: ATRIAL FIBRILLATION
     Dosage: 150 MG, 2X/DAY
     Route: 048
     Dates: start: 2012, end: 20130421
  4. BLOPRESS [Concomitant]
     Dosage: UNK
  5. BELOC [Concomitant]
     Dosage: UNK
  6. AZICLAV [Concomitant]
     Dosage: UNK
     Dates: start: 201304

REACTIONS (2)
  - Drug interaction [Unknown]
  - Subdural haemorrhage [Recovering/Resolving]
